FAERS Safety Report 13143666 (Version 1)
Quarter: 2017Q1

REPORT INFORMATION
  Report Type: Spontaneous
  Country: US (occurrence: US)
  Receive Date: 20170124
  Receipt Date: 20170124
  Transmission Date: 20170428
  Serious: No
  Sender: FDA-Public Use
  Company Number: US-BAUSCH-BL-2016-016603

PATIENT
  Age: 64 Year
  Sex: Female
  Weight: 49.03 kg

DRUGS (4)
  1. ALAWAY [Suspect]
     Active Substance: KETOTIFEN FUMARATE
     Indication: EYE PRURITUS
     Dosage: ONE DROP TO LEFT EYE ONE TIME
     Route: 047
     Dates: start: 20160708, end: 20160708
  2. ALAWAY [Suspect]
     Active Substance: KETOTIFEN FUMARATE
     Indication: OCULAR HYPERAEMIA
  3. ESTROGENS [Concomitant]
     Active Substance: ESTROGENS
     Indication: PRODUCT USED FOR UNKNOWN INDICATION
  4. MURINE [Concomitant]
     Indication: EYE LUBRICATION THERAPY
     Dosage: 1-2 DROPS TWICE DAILY
     Route: 047

REACTIONS (4)
  - Product odour abnormal [Unknown]
  - Ocular discomfort [Recovered/Resolved]
  - Hypoaesthesia eye [Recovering/Resolving]
  - Vision blurred [Recovering/Resolving]

NARRATIVE: CASE EVENT DATE: 20160708
